FAERS Safety Report 12071317 (Version 2)
Quarter: 2016Q2

REPORT INFORMATION
  Report Type: Spontaneous
  Country: IT (occurrence: IT)
  Receive Date: 20160211
  Receipt Date: 20160405
  Transmission Date: 20160815
  Serious: Yes (Other)
  Sender: FDA-Public Use
  Company Number: IT-AUROBINDO-AUR-APL-2016-01256

PATIENT
  Age: 60 Year
  Sex: Female

DRUGS (4)
  1. LEVODOPA [Suspect]
     Active Substance: LEVODOPA
     Dosage: 1200 MG, DAILY
     Route: 065
  2. LEVODOPA [Suspect]
     Active Substance: LEVODOPA
     Dosage: 600 MG, DAILY
     Route: 065
  3. LEVODOPA [Suspect]
     Active Substance: LEVODOPA
     Indication: PARKINSON^S DISEASE
     Dosage: 300 MG, DAILY
     Route: 065
  4. PRAMIPEXOLE. [Suspect]
     Active Substance: PRAMIPEXOLE
     Indication: PARKINSON^S DISEASE
     Dosage: 4.5 MG, DAILY
     Route: 065

REACTIONS (11)
  - Anxiety [Recovered/Resolved]
  - Dyskinesia [Recovered/Resolved]
  - Intentional product use issue [Recovered/Resolved]
  - Insomnia [Recovered/Resolved]
  - Drug withdrawal syndrome [Recovered/Resolved]
  - Apathy [Recovered/Resolved]
  - Depression [Recovered/Resolved]
  - On and off phenomenon [Recovered/Resolved]
  - Fatigue [Recovered/Resolved]
  - Anhedonia [Recovered/Resolved]
  - Pain [Recovered/Resolved]
